FAERS Safety Report 22950300 (Version 2)
Quarter: 2023Q4

REPORT INFORMATION
  Report Type: Spontaneous
  Country: IN (occurrence: IN)
  Receive Date: 20230915
  Receipt Date: 20231019
  Transmission Date: 20240110
  Serious: Yes (Hospitalization)
  Sender: FDA-Public Use
  Company Number: IN-PFIZER INC-PV202300154853

PATIENT
  Age: 74 Year
  Sex: Female

DRUGS (3)
  1. DACOMITINIB [Suspect]
     Active Substance: DACOMITINIB
     Dosage: 30 MG, 1X/DAY
     Route: 048
     Dates: start: 20230813
  2. CALCIUM\CHOLECALCIFEROL [Concomitant]
     Active Substance: CALCIUM\CHOLECALCIFEROL
     Dosage: 500- ONCE DAILY, 1 HR AFTER FOOD
  3. MEGEETRON [Concomitant]
     Dosage: 160 MG - TWICE DAILY

REACTIONS (6)
  - Acute kidney injury [Unknown]
  - Diarrhoea [Unknown]
  - Respiratory disorder [Unknown]
  - Body temperature decreased [Unknown]
  - Blood albumin decreased [Unknown]
  - Rash [Unknown]

NARRATIVE: CASE EVENT DATE: 20230101
